FAERS Safety Report 17568187 (Version 2)
Quarter: 2020Q3

REPORT INFORMATION
  Report Type: Report from Study
  Country: US (occurrence: US)
  Receive Date: 20200320
  Receipt Date: 20200706
  Transmission Date: 20201102
  Serious: Yes (Death, Life-Threatening, Other)
  Sender: FDA-Public Use
  Company Number: NVSC2020US078672

PATIENT
  Age: 63 Year
  Sex: Female

DRUGS (3)
  1. CYCLOPHOSPHAMIDE. [Concomitant]
     Active Substance: CYCLOPHOSPHAMIDE
     Indication: CHEMOTHERAPY
     Route: 065
  2. FLUDARABINE [Concomitant]
     Active Substance: FLUDARABINE PHOSPHATE
     Indication: CHEMOTHERAPY
     Route: 065
  3. KYMRIAH [Suspect]
     Active Substance: TISAGENLECLEUCEL
     Indication: DIFFUSE LARGE B-CELL LYMPHOMA
     Dosage: UNK, ONCE/SINGLE
     Route: 041

REACTIONS (11)
  - Lymphocyte count decreased [Unknown]
  - Haematocrit decreased [Unknown]
  - Malignant neoplasm progression [Fatal]
  - Neutropenia [Unknown]
  - Haemoglobin decreased [Unknown]
  - Cytomegalovirus infection [Unknown]
  - Thrombocytopenia [Not Recovered/Not Resolved]
  - Cytopenia [Unknown]
  - Diffuse large B-cell lymphoma recurrent [Fatal]
  - White blood cell count decreased [Unknown]
  - Diffuse large B-cell lymphoma [Fatal]
